FAERS Safety Report 21786700 (Version 7)
Quarter: 2023Q4

REPORT INFORMATION
  Report Type: Spontaneous
  Country: US (occurrence: US)
  Receive Date: 20221228
  Receipt Date: 20231031
  Transmission Date: 20240110
  Serious: No
  Sender: FDA-Public Use
  Company Number: US-PHARMING-PHAUS2022000883

PATIENT

DRUGS (7)
  1. RUCONEST [Suspect]
     Active Substance: HUMAN C1-ESTERASE INHIBITOR
     Indication: Hereditary angioedema
     Dosage: 2100 IU, TWICE A WEEK AND AS NEEDED
     Route: 058
     Dates: start: 201803
  2. RUCONEST [Suspect]
     Active Substance: HUMAN C1-ESTERASE INHIBITOR
     Dosage: 2100 IU, TWICE A WEEK AND AS NEEDED FOR BREAKTHROUGH ATTACKS
     Route: 058
     Dates: start: 201803
  3. RUCONEST [Suspect]
     Active Substance: HUMAN C1-ESTERASE INHIBITOR
     Dosage: 2100 IU, TWICE WEEKLY AND PRN
     Route: 042
     Dates: start: 201803
  4. RUCONEST [Suspect]
     Active Substance: HUMAN C1-ESTERASE INHIBITOR
     Dosage: 2100 IU, TWICE WEEKLY
     Route: 058
     Dates: start: 201803
  5. RUCONEST [Suspect]
     Active Substance: HUMAN C1-ESTERASE INHIBITOR
     Dosage: 2100 IU, TWICE A WEEK AND AS NEEDED FOR BREAKTHROUGH ATTACKS
     Route: 058
     Dates: start: 201803
  6. RUCONEST [Suspect]
     Active Substance: HUMAN C1-ESTERASE INHIBITOR
     Dosage: 2100-4200 IU, TWICE A WEEK AND AS NEEDED
     Route: 058
     Dates: start: 201803
  7. RUCONEST [Suspect]
     Active Substance: HUMAN C1-ESTERASE INHIBITOR
     Dosage: 2100-4200 IU, BY SLOW SUBCUTANEOUS INJECTION OVER APPROXIMATELY 5 MINUTES TWICE A WEEK AND AS NEEDED
     Route: 042
     Dates: start: 201803

REACTIONS (5)
  - Weight increased [Unknown]
  - Tooth disorder [Unknown]
  - Intentional product use issue [Unknown]
  - Underdose [Unknown]
  - Incorrect route of product administration [Unknown]
